FAERS Safety Report 13928347 (Version 6)
Quarter: 2021Q1

REPORT INFORMATION
  Report Type: Report from Study
  Country: US (occurrence: US)
  Receive Date: 20170901
  Receipt Date: 20210323
  Transmission Date: 20210419
  Serious: No
  Sender: FDA-Public Use
  Company Number: PHEH2017US027489

PATIENT
  Age: 50 Year
  Sex: Female

DRUGS (4)
  1. COSENTYX [Suspect]
     Active Substance: SECUKINUMAB
     Indication: PSORIATIC ARTHROPATHY
     Dosage: 300 MG, QW
     Route: 058
     Dates: start: 20190406
  2. COSENTYX [Suspect]
     Active Substance: SECUKINUMAB
     Indication: PSORIASIS
     Dosage: 1 DF, UNK
     Route: 065
  3. COSENTYX [Suspect]
     Active Substance: SECUKINUMAB
     Dosage: 300 MG, QMO
     Route: 058
     Dates: start: 20190420
  4. COSENTYX [Suspect]
     Active Substance: SECUKINUMAB
     Dosage: 300 MG, QMO
     Route: 065

REACTIONS (10)
  - Productive cough [Recovering/Resolving]
  - Oropharyngeal pain [Recovering/Resolving]
  - Product dose omission issue [Unknown]
  - Cough [Recovering/Resolving]
  - Upper respiratory tract infection [Recovering/Resolving]
  - Pyrexia [Recovering/Resolving]
  - Device issue [Unknown]
  - Incorrect dose administered [Unknown]
  - Psoriasis [Not Recovered/Not Resolved]
  - Accidental exposure to product [Unknown]

NARRATIVE: CASE EVENT DATE: 20190408
